FAERS Safety Report 17017016 (Version 2)
Quarter: 2019Q4

REPORT INFORMATION
  Report Type: Report from Study
  Country: None (occurrence: US)
  Receive Date: 20191111
  Receipt Date: 20191125
  Transmission Date: 20200122
  Serious: Yes (Other)
  Sender: FDA-Public Use
  Company Number: US-ABBVIE-19P-163-2997221-00

PATIENT
  Age: 58 Year
  Sex: Female
  Weight: 73.55 kg

DRUGS (1)
  1. SKYRIZI [Suspect]
     Active Substance: RISANKIZUMAB-RZAA
     Indication: PSORIASIS
     Route: 058
     Dates: start: 20191022, end: 20191022

REACTIONS (1)
  - Anal cancer stage III [Not Recovered/Not Resolved]

NARRATIVE: CASE EVENT DATE: 20191115
